FAERS Safety Report 9077879 (Version 1)
Quarter: 2013Q1

REPORT INFORMATION
  Report Type: Report from Study
  Country: US (occurrence: US)
  Receive Date: 20130130
  Receipt Date: 20130130
  Transmission Date: 20140127
  Serious: No
  Sender: FDA-Public Use
  Company Number: US-ABBOTT-12P-163-0955967-00

PATIENT
  Sex: Female
  Weight: 111.23 kg

DRUGS (15)
  1. HUMIRA 40 MG/0.8 ML PEN [Suspect]
     Indication: CROHN^S DISEASE
     Dates: start: 20120308
  2. HUMIRA 40 MG/0.8 ML PEN [Suspect]
     Indication: RHEUMATOID ARTHRITIS
  3. HUMALOG INSULIN [Concomitant]
     Indication: DIABETES MELLITUS
  4. LANTUS INSULIN [Concomitant]
     Indication: DIABETES MELLITUS
  5. XANAX [Concomitant]
     Indication: ANXIETY
  6. PERCOCET [Concomitant]
     Indication: PAIN
  7. REGLAN [Concomitant]
     Indication: ABDOMINAL DISCOMFORT
  8. REGLAN [Concomitant]
     Indication: GASTROOESOPHAGEAL REFLUX DISEASE
  9. VITAMIN D [Concomitant]
     Indication: VITAMIN D DECREASED
  10. FENTANYL PATCH [Concomitant]
     Indication: PAIN
  11. LAMOTIL [Concomitant]
     Indication: DIARRHOEA
  12. MIRILAX [Concomitant]
     Indication: CONSTIPATION
  13. PREDNISONE [Concomitant]
     Indication: RED BLOOD CELL SEDIMENTATION RATE INCREASED
  14. PREDNISONE [Concomitant]
     Indication: RHEUMATOID ARTHRITIS
     Dosage: INCREASED DOSAGE
  15. ASACOL [Concomitant]
     Indication: CROHN^S DISEASE

REACTIONS (6)
  - Dermatitis [Recovered/Resolved]
  - Pruritus [Recovered/Resolved]
  - Skin infection [Recovered/Resolved]
  - Blister [Recovered/Resolved]
  - Skin burning sensation [Recovered/Resolved]
  - Rash [Recovered/Resolved]
